FAERS Safety Report 4944425-4 (Version None)
Quarter: 2006Q1

REPORT INFORMATION
  Report Type: 
  Country: None (occurrence: None)
  Receive Date: 20060315
  Receipt Date: 20060228
  Transmission Date: 20060701
  Serious: Yes (Hospitalization)
  Sender: FDA-Public Use
  Company Number: US-MERCK-0603USA00143

PATIENT
  Age: 78 Year
  Sex: Male
  Weight: 89 kg

DRUGS (1)
  1. VIOXX [Suspect]
     Indication: ARTHROPATHY
     Route: 048
     Dates: start: 20001001, end: 20010101

REACTIONS (15)
  - ADRENAL MASS [None]
  - CARDIAC FAILURE CONGESTIVE [None]
  - CATARACT [None]
  - CONTUSION [None]
  - FALL [None]
  - HAEMARTHROSIS [None]
  - HEPATIC LESION [None]
  - INGUINAL HERNIA [None]
  - ISCHAEMIC CARDIOMYOPATHY [None]
  - LIMB INJURY [None]
  - PLEURAL EFFUSION [None]
  - RENAL FAILURE CHRONIC [None]
  - VASCULAR GRAFT OCCLUSION [None]
  - VENTRICULAR TACHYCARDIA [None]
  - WEIGHT DECREASED [None]
